FAERS Safety Report 5086055-2 (Version None)
Quarter: 2006Q3

REPORT INFORMATION
  Report Type: 
  Country: None (occurrence: None)
  Receive Date: 20060816
  Receipt Date: 20060808
  Transmission Date: 20061208
  Serious: Yes (Other)
  Sender: FDA-Public Use
  Company Number: HQWYE197408AUG06

PATIENT
  Age: 63 Year
  Sex: Female

DRUGS (3)
  1. RAPAMUNE [Suspect]
     Indication: IMMUNOSUPPRESSANT DRUG THERAPY
     Dosage: ^ LOW DOSE ^
  2. TACROLIMUS (TACROLIMUS, ) [Suspect]
     Indication: IMMUNOSUPPRESSANT DRUG THERAPY
     Dosage: UNSPECIFIED REDUCED DOSE
  3. PREDNISOLONE [Concomitant]

REACTIONS (10)
  - ARTERIOPATHIC DISEASE [None]
  - ASCITES [None]
  - HYPOVOLAEMIA [None]
  - IMMUNOSUPPRESSANT DRUG LEVEL INCREASED [None]
  - OEDEMA PERIPHERAL [None]
  - PLEURAL EFFUSION [None]
  - RENAL ARTERY STENOSIS [None]
  - RENAL TUBULAR NECROSIS [None]
  - RENAL VESSEL DISORDER [None]
  - THERAPEUTIC AGENT TOXICITY [None]
